FAERS Safety Report 8612098-5 (Version None)
Quarter: 2012Q3

REPORT INFORMATION
  Report Type: 
  Country: None (occurrence: None)
  Receive Date: 20120822
  Receipt Date: 20120814
  Transmission Date: 20120928
  Serious: No
  Sender: FDA-Public Use
  Company Number: US-ASTRAZENECA-2012SE57250

PATIENT
  Age: 63 Year
  Sex: Female
  Weight: 65.3 kg

DRUGS (4)
  1. NEXIUM [Suspect]
     Indication: GASTROOESOPHAGEAL REFLUX DISEASE
     Route: 048
  2. XANAX [Concomitant]
     Indication: ANXIETY
  3. NORVASC [Concomitant]
     Indication: HYPERTENSION
  4. NASONEX [Concomitant]
     Indication: SINUS DISORDER

REACTIONS (5)
  - IMPAIRED GASTRIC EMPTYING [None]
  - OESOPHAGITIS [None]
  - ABDOMINAL PAIN UPPER [None]
  - OROPHARYNGEAL PAIN [None]
  - HIATUS HERNIA [None]
